FAERS Safety Report 4356960-0 (Version None)
Quarter: 2004Q2

REPORT INFORMATION
  Report Type: 
  Country: None (occurrence: None)
  Receive Date: 20040507
  Receipt Date: 20040426
  Transmission Date: 20050107
  Serious: Yes (Other)
  Sender: FDA-Public Use
  Company Number: 2004-BP-03263BP

PATIENT
  Age: 53 Year
  Sex: Male

DRUGS (2)
  1. MIRAPEX [Suspect]
     Indication: PARKINSON'S DISEASE
     Dosage: 4.5 MG (1.5 MG, 1 TID), PO
     Route: 048
     Dates: start: 20030401, end: 20040423
  2. SINEMET [Concomitant]

REACTIONS (1)
  - GAMBLING [None]
